FAERS Safety Report 8531979 (Version 2)
Quarter: 2015Q2

REPORT INFORMATION
  Report Type: Report from Study
  Country: GB (occurrence: GB)
  Receive Date: 20120426
  Receipt Date: 20150513
  Transmission Date: 20150821
  Serious: Yes (Hospitalization)
  Sender: FDA-Public Use
  Company Number: GB-ROCHE-1059000

PATIENT
  Age: 70 Year
  Sex: Male
  Weight: 72 kg

DRUGS (8)
  1. OMEPRAZOLE. [Concomitant]
     Active Substance: OMEPRAZOLE
     Route: 065
     Dates: start: 20120125
  2. CISPLATIN. [Suspect]
     Active Substance: CISPLATIN
     Indication: GASTRIC CANCER
     Dosage: DATE OF LAST DOSE PRIOR TO SAE:15/02/2012
     Route: 042
     Dates: start: 20120125
  3. METOCLOPRAMIDE. [Concomitant]
     Active Substance: METOCLOPRAMIDE
     Route: 065
     Dates: start: 20120125
  4. CAPECITABINE. [Suspect]
     Active Substance: CAPECITABINE
     Indication: GASTRIC CANCER
     Route: 048
     Dates: start: 20120125
  5. ONDANSETRON [Concomitant]
     Active Substance: ONDANSETRON
     Route: 065
     Dates: start: 20120125
  6. DEXAMETHASONE. [Concomitant]
     Active Substance: DEXAMETHASONE
     Route: 065
     Dates: start: 20120125
  7. BEVACIZUMAB [Suspect]
     Active Substance: BEVACIZUMAB
     Indication: GASTRIC CANCER
     Route: 042
     Dates: start: 20120125
  8. EPIRUBICIN [Suspect]
     Active Substance: EPIRUBICIN
     Indication: GASTRIC CANCER
     Dosage: DATE OF LAST DOSE PRIOR TO SAE:15/02/2012
     Route: 042
     Dates: start: 20120125

REACTIONS (1)
  - Chondrocalcinosis pyrophosphate [Recovered/Resolved]

NARRATIVE: CASE EVENT DATE: 20120302
